FAERS Safety Report 11688549 (Version 1)
Quarter: 2015Q4

REPORT INFORMATION
  Report Type: Spontaneous
  Country: US (occurrence: US)
  Receive Date: 20151101
  Receipt Date: 20151101
  Transmission Date: 20160304
  Serious: Yes (Other)
  Sender: FDA-Public Use
  Company Number: US-TEVA-604921ACC

PATIENT
  Sex: Female
  Weight: 66.28 kg

DRUGS (2)
  1. PRENATAL VITAMINS [Concomitant]
     Active Substance: VITAMINS
     Indication: SUPPLEMENTATION THERAPY
  2. PARAGARD T 380A [Suspect]
     Active Substance: COPPER
     Indication: CONTRACEPTION
     Dates: start: 20150727, end: 20151002

REACTIONS (3)
  - Device dislocation [Recovered/Resolved]
  - Exposure during breast feeding [Unknown]
  - Pelvic pain [Recovered/Resolved]
